FAERS Safety Report 21423709 (Version 1)
Quarter: 2022Q4

REPORT INFORMATION
  Report Type: Spontaneous
  Country: FR (occurrence: FR)
  Receive Date: 20221007
  Receipt Date: 20221007
  Transmission Date: 20230113
  Serious: Yes (Other)
  Sender: FDA-Public Use
  Company Number: FR-009507513-2209FRA011157

PATIENT
  Sex: Male

DRUGS (1)
  1. ZERBAXA [Suspect]
     Active Substance: CEFTOLOZANE SULFATE\TAZOBACTAM SODIUM
     Indication: Osteitis
     Dosage: UNK

REACTIONS (4)
  - Infusion site phlebitis [Unknown]
  - Administration related reaction [Unknown]
  - Infusion site phlebitis [Unknown]
  - Off label use [Unknown]
